FAERS Safety Report 4322177-9 (Version None)
Quarter: 2004Q1

REPORT INFORMATION
  Report Type: 
  Country: None (occurrence: None)
  Receive Date: 20040319
  Receipt Date: 20040309
  Transmission Date: 20041129
  Serious: Yes (Death)
  Sender: FDA-Public Use
  Company Number: 163-20785-03120233

PATIENT
  Age: 74 Year
  Sex: Male

DRUGS (1)
  1. THALOMID [Suspect]
     Indication: LUNG NEOPLASM MALIGNANT
     Dosage: 200 MG, QHS, ORAL
     Route: 048
     Dates: start: 20030303

REACTIONS (2)
  - LUNG NEOPLASM MALIGNANT [None]
  - MALIGNANT NEOPLASM PROGRESSION [None]
